FAERS Safety Report 23068757 (Version 1)
Quarter: 2023Q4

REPORT INFORMATION
  Report Type: Report from Study
  Country: IT (occurrence: IT)
  Receive Date: 20231016
  Receipt Date: 20231016
  Transmission Date: 20240110
  Serious: Yes (Other)
  Sender: FDA-Public Use
  Company Number: None

PATIENT
  Age: 73 Year
  Sex: Female
  Weight: 74 kg

DRUGS (4)
  1. PACLITAXEL [Suspect]
     Active Substance: PACLITAXEL
     Indication: Breast cancer stage IV
     Dosage: START OF THERAPY 16/05/2023 - WEEKLY PACLITAXEL
     Route: 065
     Dates: start: 20230516
  2. PACLITAXEL [Suspect]
     Active Substance: PACLITAXEL
     Dosage: 135 MG, QW ( WEEKLY PACLITAXEL, 2ND WEEK OF ADM)
     Route: 042
     Dates: start: 20230523, end: 20230523
  3. TRASTUZUMAB [Suspect]
     Active Substance: TRASTUZUMAB
     Indication: Breast cancer stage IV
     Dosage: 590 MG(1ST CYCLE LOADING DOSE- START 16-MAY-2023)
     Route: 042
     Dates: start: 20230516, end: 20230516
  4. PERTUZUMAB [Suspect]
     Active Substance: PERTUZUMAB
     Indication: Breast cancer stage IV
     Dosage: 840 MG(1ST CYCLE LOADING DOSE- START 16-MAY-2023)
     Route: 042
     Dates: start: 20230516, end: 20230516

REACTIONS (5)
  - Diarrhoea [Recovering/Resolving]
  - Neutropenia [Recovering/Resolving]
  - Leukopenia [Recovering/Resolving]
  - Blood creatinine increased [Recovering/Resolving]
  - Off label use [Recovering/Resolving]

NARRATIVE: CASE EVENT DATE: 20230523
